FAERS Safety Report 19303747 (Version 1)
Quarter: 2021Q2

REPORT INFORMATION
  Report Type: Spontaneous
  Country: AU (occurrence: AU)
  Receive Date: 20210525
  Receipt Date: 20210525
  Transmission Date: 20210717
  Serious: Yes (Other)
  Sender: FDA-Public Use
  Company Number: AU-ROCHE-2835495

PATIENT
  Sex: Female

DRUGS (2)
  1. DAPSONE. [Concomitant]
     Active Substance: DAPSONE
  2. TOCILIZUMAB. [Suspect]
     Active Substance: TOCILIZUMAB
     Indication: GIANT CELL ARTERITIS
     Route: 065

REACTIONS (3)
  - Abdominal wall haematoma [Unknown]
  - Blood fibrinogen decreased [Unknown]
  - Disseminated intravascular coagulation [Unknown]
